FAERS Safety Report 4952340-5 (Version None)
Quarter: 2006Q1

REPORT INFORMATION
  Report Type: 
  Country: None (occurrence: None)
  Receive Date: 20060131
  Receipt Date: 20050718
  Transmission Date: 20060701
  Serious: Yes (Other)
  Sender: FDA-Public Use
  Company Number: WAES 0507USA02326

PATIENT
  Age: 81 Year
  Sex: Female
  Weight: 73.9363 kg

DRUGS (10)
  1. INVANZ [Suspect]
     Dosage: G1 GM DAILY IV
     Route: 042
     Dates: start: 20050614, end: 20050624
  2. COUMADIN [Concomitant]
  3. GLUCOPHAGE [Concomitant]
  4. LANOXIN [Concomitant]
  5. LASIX [Concomitant]
  6. SYNTHROID [Concomitant]
  7. ATENOLOL [Concomitant]
  8. GLYBURIDE [Concomitant]
  9. POTASSIUM (UNSPECIFIED) [Concomitant]
  10. QUNINIE [Concomitant]

REACTIONS (1)
  - CONVULSION [None]
